FAERS Safety Report 7726261-9 (Version None)
Quarter: 2011Q3

REPORT INFORMATION
  Report Type: 
  Country: None (occurrence: None)
  Receive Date: 20110902
  Receipt Date: 20110822
  Transmission Date: 20111222
  Serious: Yes (Other)
  Sender: FDA-Public Use
  Company Number: GB-SANOFI-AVENTIS-2011SA055007

PATIENT

DRUGS (3)
  1. CLOPIDOGREL BISULFATE [Suspect]
     Route: 065
  2. ASPIRIN [Concomitant]
     Route: 065
  3. ALL OTHER THERAPEUTIC PRODUCTS [Concomitant]
     Route: 065

REACTIONS (2)
  - PLATELET DISORDER [None]
  - DRUG WITHDRAWAL MAINTENANCE THERAPY [None]
